FAERS Safety Report 11242988 (Version 1)
Quarter: 2015Q3

REPORT INFORMATION
  Report Type: Spontaneous
  Country: RO (occurrence: RO)
  Receive Date: 20150707
  Receipt Date: 20150707
  Transmission Date: 20151125
  Serious: Yes (Hospitalization)
  Sender: FDA-Public Use
  Company Number: RO-COREPHARMA LLC-2015COR00132

PATIENT

DRUGS (1)
  1. ISOSORBIDE. [Suspect]
     Active Substance: ISOSORBIDE
     Dosage: UNK

REACTIONS (2)
  - Shock [Recovered/Resolved]
  - Toxicity to various agents [Recovered/Resolved]
